FAERS Safety Report 4312813-5 (Version None)
Quarter: 2004Q1

REPORT INFORMATION
  Report Type: 
  Country: None (occurrence: None)
  Receive Date: 20040304
  Receipt Date: 20040219
  Transmission Date: 20041129
  Serious: Yes (Hospitalization)
  Sender: FDA-Public Use
  Company Number: 2003-05867

PATIENT
  Age: 42 Year
  Sex: Female

DRUGS (6)
  1. VIREAD [Suspect]
     Indication: HIV INFECTION
     Dosage: 300 MG QD; PO
     Route: 048
     Dates: start: 20011105, end: 20030317
  2. EPIVIR [Concomitant]
  3. ZIAGEN [Concomitant]
  4. KALETRA [Concomitant]
  5. RIVOTRIL [Concomitant]
  6. NEURONTIN [Concomitant]

REACTIONS (9)
  - BLOOD PHOSPHORUS DECREASED [None]
  - GLYCOSURIA [None]
  - HIV DISEASE PROGRESSION [None]
  - NERVOUS SYSTEM DISORDER [None]
  - PAIN [None]
  - PROTEINURIA [None]
  - RENAL FAILURE [None]
  - RENAL TUBULAR DISORDER [None]
  - WEIGHT DECREASED [None]
